FAERS Safety Report 9409767 (Version 1)
Quarter: 2013Q3

REPORT INFORMATION
  Report Type: Spontaneous
  Country: US (occurrence: US)
  Receive Date: 20130719
  Receipt Date: 20130719
  Transmission Date: 20140515
  Serious: No
  Sender: FDA-Public Use
  Company Number: US-009507513-1307USA009187

PATIENT
  Age: 73 Year
  Sex: Female

DRUGS (6)
  1. AZASITE [Suspect]
     Indication: ANTIBIOTIC THERAPY
     Dosage: 1 GTT, BID TO EACH EYE
     Route: 047
     Dates: start: 20130620
  2. REFRESH PLUS [Suspect]
     Indication: BLEPHARITIS
     Dosage: 1 GTT, 4 TIMES A DAY
     Route: 047
     Dates: start: 20130620
  3. REFRESH PLUS [Suspect]
     Indication: DRY EYE
  4. PATADAY [Suspect]
     Indication: EYE ALLERGY
     Dosage: 1 GTT, QD
     Route: 047
     Dates: start: 20130620
  5. VITAMIN D (UNSPECIFIED) [Concomitant]
     Indication: ROUTINE HEALTH MAINTENANCE
  6. MELOXICAM [Concomitant]
     Indication: ARTHRITIS

REACTIONS (4)
  - Skin burning sensation [Not Recovered/Not Resolved]
  - Eye irritation [Not Recovered/Not Resolved]
  - Off label use [Unknown]
  - Drug administration error [Unknown]
